FAERS Safety Report 14179998 (Version 1)
Quarter: 2020Q3

REPORT INFORMATION
  Report Type: Report from Study
  Country: JP (occurrence: JP)
  Receive Date: 20171110
  Receipt Date: 20171110
  Transmission Date: 20201104
  Serious: Yes (Hospitalization)
  Sender: FDA-Public Use
  Company Number: JP-PFIZER INC-2017438505

PATIENT
  Age: 70 Year
  Sex: Male
  Weight: 66 kg

DRUGS (10)
  1. DALACIN [CLINDAMYCIN HYDROCHLORIDE] [Suspect]
     Active Substance: CLINDAMYCIN HYDROCHLORIDE
     Route: 065
  2. NEXIUM [Concomitant]
     Active Substance: ESOMEPRAZOLE MAGNESIUM
     Indication: PROPHYLAXIS AGAINST GASTROINTESTINAL ULCER
     Dosage: 20 MG, 1X/DAY
     Route: 048
     Dates: start: 20150120
  3. THYRADIN?S [Concomitant]
     Active Substance: LEVOTHYROXINE
     Indication: HYPOTHYROIDISM
     Dosage: 25 UG, 1X/DAY
     Route: 048
     Dates: start: 20170322
  4. CORTRIL [Concomitant]
     Active Substance: HYDROCORTISONE
     Indication: SECONDARY HYPOGONADISM
     Dosage: 5 MG, 2X/DAY
     Route: 048
     Dates: start: 20170714
  5. NESINA [Concomitant]
     Active Substance: ALOGLIPTIN BENZOATE
     Indication: DIABETES MELLITUS
     Dosage: 6.25 MG, 1X/DAY
     Route: 048
     Dates: start: 20161227
  6. LOXONIN TAPE [Concomitant]
     Indication: TUMOUR PAIN
     Dosage: 100 MG, 1X/DAY
     Route: 062
     Dates: start: 20170530
  7. XARELTO [Concomitant]
     Active Substance: RIVAROXABAN
     Indication: VENOUS STENOSIS
     Dosage: 15 MG, 1X/DAY
     Route: 048
     Dates: start: 20170830
  8. TREMELIMUMAB. [Suspect]
     Active Substance: TREMELIMUMAB
     Indication: OESOPHAGEAL CARCINOMA
     Dosage: 67.5 MG, CYCLIC (ONCE EVERY FOUR WEEKS)
     Route: 042
     Dates: start: 20170111
  9. MEDI4736 [Suspect]
     Active Substance: DURVALUMAB
     Indication: OESOPHAGEAL CARCINOMA
     Dosage: 1350 MG, CYCLIC (ONCE EVERY FOUR WEEKS)
     Route: 042
     Dates: start: 20170111
  10. MEDI4736 [Suspect]
     Active Substance: DURVALUMAB
     Dosage: 1350 MG, CYCLIC (ONCE EVERY 4 WEEKS)
     Route: 042
     Dates: start: 20170405

REACTIONS (2)
  - Cellulitis [Recovered/Resolved]
  - Drug eruption [Recovered/Resolved]

NARRATIVE: CASE EVENT DATE: 20171003
